FAERS Safety Report 19860377 (Version 4)
Quarter: 2023Q2

REPORT INFORMATION
  Report Type: Spontaneous
  Country: US (occurrence: US)
  Receive Date: 20210921
  Receipt Date: 20230404
  Transmission Date: 20230722
  Serious: Yes (Other)
  Sender: FDA-Public Use
  Company Number: US-JNJFOC-20210924363

PATIENT
  Sex: Female

DRUGS (1)
  1. ELMIRON [Suspect]
     Active Substance: PENTOSAN POLYSULFATE SODIUM
     Indication: Cystitis interstitial
     Dosage: THREE 100 MG CAPSULES PER DAY
     Route: 048
     Dates: start: 1996, end: 2020

REACTIONS (2)
  - Retinal pigmentation [Unknown]
  - Toxicity to various agents [Unknown]
